FAERS Safety Report 9092878 (Version 1)
Quarter: 2013Q1

REPORT INFORMATION
  Report Type: Spontaneous
  Country: US (occurrence: US)
  Receive Date: 20130218
  Receipt Date: 20130218
  Transmission Date: 20140127
  Serious: No
  Sender: FDA-Public Use
  Company Number: US-ABBOTT-12P-163-0999591-00

PATIENT
  Age: 56 Year
  Sex: Female
  Weight: 95.34 kg

DRUGS (4)
  1. SIMCOR 500/20 [Suspect]
     Indication: PRODUCT USED FOR UNKNOWN INDICATION
     Dosage: 500/20 MILLIGRAMS
     Dates: start: 20120831
  2. METFORMIN [Concomitant]
     Indication: DIABETES MELLITUS
  3. GABAPENTIN [Concomitant]
     Indication: NEUROPATHY PERIPHERAL
  4. TAMOXIFEN [Concomitant]
     Indication: BREAST CANCER

REACTIONS (2)
  - Pain in extremity [Not Recovered/Not Resolved]
  - Arthralgia [Not Recovered/Not Resolved]
